FAERS Safety Report 21730439 (Version 3)
Quarter: 2023Q1

REPORT INFORMATION
  Report Type: Spontaneous
  Country: US (occurrence: US)
  Receive Date: 20221215
  Receipt Date: 20230306
  Transmission Date: 20230418
  Serious: Yes (Hospitalization)
  Sender: FDA-Public Use
  Company Number: US-BRISTOL-MYERS SQUIBB COMPANY-2022-150576

PATIENT
  Age: 76 Year
  Sex: Female
  Weight: 118.84 kg

DRUGS (2)
  1. REVLIMID [Suspect]
     Active Substance: LENALIDOMIDE
     Indication: Plasma cell myeloma
     Dosage: DAILY FOR 14 DAYS
     Route: 048
     Dates: start: 20160501
  2. REVLIMID [Suspect]
     Active Substance: LENALIDOMIDE
     Dosage: 25 MG, 2 WEEKS, 1 WEEK OFF AND 14 DAYS ON 7 DAYS OFF
     Route: 048

REACTIONS (2)
  - Asthma [Recovering/Resolving]
  - Off label use [Unknown]
